FAERS Safety Report 16499963 (Version 1)
Quarter: 2019Q3

REPORT INFORMATION
  Report Type: Spontaneous
  Country: US (occurrence: US)
  Receive Date: 20190701
  Receipt Date: 20190701
  Transmission Date: 20191004
  Serious: Yes (Hospitalization)
  Sender: FDA-Public Use
  Company Number: US-SA-2019SA171040

PATIENT
  Sex: Female

DRUGS (3)
  1. DIAZEPAM. [Concomitant]
     Active Substance: DIAZEPAM
  2. AUBAGIO [Suspect]
     Active Substance: TERIFLUNOMIDE
     Indication: PRODUCT USED FOR UNKNOWN INDICATION
     Dosage: 1 DF, QD
     Route: 048
     Dates: start: 2017
  3. ALPRAZOLAM. [Concomitant]
     Active Substance: ALPRAZOLAM
     Dosage: UNK

REACTIONS (8)
  - Swelling [Unknown]
  - Hospitalisation [Unknown]
  - Dyspnoea [Unknown]
  - Ear discomfort [Unknown]
  - Blood pressure increased [Unknown]
  - Skin exfoliation [Unknown]
  - Chest discomfort [Unknown]
  - Heart rate increased [Unknown]
